FAERS Safety Report 18887766 (Version 2)
Quarter: 2021Q1

REPORT INFORMATION
  Report Type: Spontaneous
  Country: DE (occurrence: US)
  Receive Date: 20210212
  Receipt Date: 20210326
  Transmission Date: 20210420
  Serious: Yes (Death, Other)
  Sender: FDA-Public Use
  Company Number: DE-ABBVIE-21K-062-3773237-00

PATIENT
  Sex: Male

DRUGS (3)
  1. GILTERITINIB [Interacting]
     Active Substance: GILTERITINIB
     Indication: ACUTE MYELOID LEUKAEMIA
     Route: 065
  2. VENETOCLAX. [Suspect]
     Active Substance: VENETOCLAX
     Indication: ACUTE MYELOID LEUKAEMIA REFRACTORY
     Dosage: UNK UNK, UNKNOWN FREQ.
     Route: 065
  3. GILTERITINIB [Interacting]
     Active Substance: GILTERITINIB
     Indication: ACUTE MYELOID LEUKAEMIA

REACTIONS (3)
  - Death [Fatal]
  - Drug interaction [Unknown]
  - Product use issue [Unknown]
